FAERS Safety Report 6685089-1 (Version None)
Quarter: 2010Q2

REPORT INFORMATION
  Report Type: 
  Country: None (occurrence: None)
  Receive Date: 20100416
  Receipt Date: 20100412
  Transmission Date: 20101027
  Serious: Yes (Other)
  Sender: FDA-Public Use
  Company Number: B0646782A

PATIENT
  Age: 73 Year
  Sex: Male

DRUGS (10)
  1. TOPOTECAN [Suspect]
     Dosage: 4.5MG PER DAY
     Route: 048
     Dates: start: 20091231, end: 20100104
  2. CLONAZEPAM [Concomitant]
     Indication: PAIN
     Dosage: 2.5MG PER DAY
     Route: 048
     Dates: start: 20091101
  3. GABAPENTIN [Concomitant]
     Indication: PAIN
     Dosage: 1800MG PER DAY
     Route: 048
     Dates: start: 20091101
  4. MORPHINE [Concomitant]
     Indication: PAIN
     Dosage: 60MG PER DAY
     Route: 048
     Dates: start: 20091101
  5. FUROSEMIDE [Concomitant]
  6. ZOPICLONE [Concomitant]
  7. MOVICOL [Concomitant]
  8. PARACETAMOL [Concomitant]
  9. DEXAMETHASONE [Concomitant]
  10. INSULIN DETEMIR [Concomitant]

REACTIONS (1)
  - INTESTINAL PERFORATION [None]
